FAERS Safety Report 5117915-1 (Version None)
Quarter: 2006Q3

REPORT INFORMATION
  Report Type: 
  Country: None (occurrence: None)
  Receive Date: 20060925
  Receipt Date: 20060911
  Transmission Date: 20061208
  Serious: Yes (Hospitalization)
  Sender: FDA-Public Use
  Company Number: 225990

PATIENT
  Age: 55 Year
  Sex: Male
  Weight: 77.2 kg

DRUGS (6)
  1. RITUXAN [Suspect]
     Indication: NON-HODGKIN'S LYMPHOMA
     Dosage: 687 MG, UNK; INTRAVENOUS
     Route: 042
     Dates: start: 20060511
  2. FLUDARABINE PHOSPHATE [Suspect]
     Indication: LYMPHOMA
     Dosage: 70 MG, UNK; ORAL
     Route: 048
     Dates: start: 20060511, end: 20060515
  3. CALONAL (ACETAMINOPHEN) [Concomitant]
  4. POLARAMINE [Concomitant]
  5. ACETAMINOPHEN [Concomitant]
  6. CHLORPHENIRAMINE MALEATE [Concomitant]

REACTIONS (5)
  - ANOREXIA [None]
  - DEEP VEIN THROMBOSIS [None]
  - POOR PERIPHERAL CIRCULATION [None]
  - VENA CAVA THROMBOSIS [None]
  - VENOUS STENOSIS [None]
